FAERS Safety Report 22609627 (Version 1)
Quarter: 2023Q2

REPORT INFORMATION
  Report Type: Spontaneous
  Country: US (occurrence: US)
  Receive Date: 20230616
  Receipt Date: 20230616
  Transmission Date: 20230722
  Serious: Yes (Other)
  Sender: FDA-Public Use
  Company Number: US-MYLANLABS-2023M1062978

PATIENT
  Age: 54 Year
  Sex: Female

DRUGS (7)
  1. LATANOPROST [Suspect]
     Active Substance: LATANOPROST
     Indication: Uveitis
     Dosage: UNK, QD, IN BOTH THE EYES
     Route: 065
  2. BETAXOLOL [Suspect]
     Active Substance: BETAXOLOL
     Indication: Uveitis
     Dosage: UNK, BID, IN BOTH THE EYES
     Route: 065
  3. BRIMONIDINE TARTRATE\BRINZOLAMIDE [Suspect]
     Active Substance: BRIMONIDINE TARTRATE\BRINZOLAMIDE
     Indication: Uveitis
     Dosage: UNK, QID, FOUR TIMES A DAY IN BOTH THE EYES
     Route: 065
  4. PREDNISONE [Concomitant]
     Active Substance: PREDNISONE
     Indication: Uveitis
     Dosage: 80 MILLIGRAM, QD
     Route: 048
  5. PREDNISONE [Concomitant]
     Active Substance: PREDNISONE
     Dosage: 10 MILLIGRAM, QD
     Route: 048
  6. DIFLUPREDNATE [Concomitant]
     Active Substance: DIFLUPREDNATE
     Indication: Uveitis
     Dosage: 1 PERCENT, FOUR TIMES DAILY IN THE RIGHT EYE
     Route: 061
  7. DIFLUPREDNATE [Concomitant]
     Active Substance: DIFLUPREDNATE
     Dosage: UNK, DOSE WAS REDUCED
     Route: 061

REACTIONS (2)
  - Drug ineffective for unapproved indication [Unknown]
  - Off label use [Unknown]
